FAERS Safety Report 4538073-8 (Version None)
Quarter: 2004Q4

REPORT INFORMATION
  Report Type: 
  Country: None (occurrence: None)
  Receive Date: 20041222
  Receipt Date: 20041122
  Transmission Date: 20050328
  Serious: Yes (Death)
  Sender: FDA-Public Use
  Company Number: GXKR2004US00473

PATIENT
  Age: 75 Year
  Sex: Male

DRUGS (3)
  1. DEXAMETHASONE [Suspect]
     Indication: LIVER DISORDER
     Dosage: SEE IMAGE
  2. HYDROMORPHONE HCL [Concomitant]
  3. WARFARIN SODIUM [Concomitant]

REACTIONS (9)
  - ADRENOCORTICAL INSUFFICIENCY ACUTE [None]
  - APHAGIA [None]
  - CIRCULATORY COLLAPSE [None]
  - COLON CANCER METASTATIC [None]
  - COMA [None]
  - CONDITION AGGRAVATED [None]
  - LETHARGY [None]
  - MEDICATION ERROR [None]
  - SHOCK [None]
